FAERS Safety Report 8528576-3 (Version None)
Quarter: 2012Q3

REPORT INFORMATION
  Report Type: 
  Country: None (occurrence: None)
  Receive Date: 20120723
  Receipt Date: 20120712
  Transmission Date: 20120928
  Serious: Yes (Hospitalization)
  Sender: FDA-Public Use
  Company Number: US-BIOGENIDEC-2011BI008875

PATIENT
  Sex: Female

DRUGS (3)
  1. LOVENOX [Concomitant]
     Indication: PROPHYLAXIS
  2. AVONEX [Suspect]
     Route: 030
     Dates: start: 20090501
  3. AVONEX [Suspect]
     Indication: MULTIPLE SCLEROSIS
     Route: 030
     Dates: start: 20040903

REACTIONS (5)
  - FALL [None]
  - FEMUR FRACTURE [None]
  - LIMB INJURY [None]
  - LOWER LIMB FRACTURE [None]
  - LACERATION [None]
